FAERS Safety Report 19740539 (Version 3)
Quarter: 2022Q2

REPORT INFORMATION
  Report Type: Spontaneous
  Country: GB (occurrence: GB)
  Receive Date: 20210824
  Receipt Date: 20220412
  Transmission Date: 20220721
  Serious: Yes (Other)
  Sender: FDA-Public Use
  Company Number: None

PATIENT
  Age: 26 Year
  Sex: Male

DRUGS (5)
  1. MONTELUKAST SODIUM [Suspect]
     Active Substance: MONTELUKAST SODIUM
     Indication: Ill-defined disorder
     Dosage: 10MG 1X PER NIGHT
     Route: 048
     Dates: start: 20210707, end: 20210806
  2. FLUTICASONE\FORMOTEROL [Concomitant]
     Active Substance: FLUTICASONE\FORMOTEROL
     Indication: Ill-defined disorder
  3. NEBIDO [Concomitant]
     Active Substance: TESTOSTERONE UNDECANOATE
     Indication: Ill-defined disorder
  4. ESTRIOL [Concomitant]
     Active Substance: ESTRIOL
     Indication: Ill-defined disorder
  5. VENTOLIN [Concomitant]
     Active Substance: ALBUTEROL SULFATE
     Indication: Ill-defined disorder

REACTIONS (5)
  - Anxiety [Unknown]
  - Panic attack [Unknown]
  - Paraesthesia [Unknown]
  - Urticaria [Unknown]
  - Throat tightness [Unknown]
